FAERS Safety Report 25436196 (Version 5)
Quarter: 2025Q3

REPORT INFORMATION
  Report Type: Spontaneous
  Country: US (occurrence: US)
  Receive Date: 20250614
  Receipt Date: 20250917
  Transmission Date: 20251020
  Serious: Yes (Other)
  Sender: SANOFI AVENTIS
  Company Number: US-SA-2025SA167858

PATIENT
  Age: 69 Year
  Sex: Female
  Weight: 65.91 kg

DRUGS (16)
  1. KEVZARA [Suspect]
     Active Substance: SARILUMAB
     Indication: Illness
     Dosage: 200 MG, QOW
     Route: 058
  2. KEVZARA [Suspect]
     Active Substance: SARILUMAB
     Indication: Rheumatoid arthritis
  3. TOPROL XL [Concomitant]
     Active Substance: METOPROLOL SUCCINATE
  4. HYDROCHLOROTHIAZIDE\TRIAMTERENE [Concomitant]
     Active Substance: HYDROCHLOROTHIAZIDE\TRIAMTERENE
  5. TYLENOL [Concomitant]
     Active Substance: ACETAMINOPHEN
  6. LEFLUNOMIDE [Concomitant]
     Active Substance: LEFLUNOMIDE
  7. EUCALYPTUS OIL [Concomitant]
     Active Substance: EUCALYPTUS OIL
  8. PEPPERMINT [Concomitant]
     Active Substance: PEPPERMINT
  9. TEA TREE [Concomitant]
     Active Substance: GLYCERIN
  10. ROSEMARY [SALVIA ROSMARINUS] [Concomitant]
  11. GAULTHERIA PROCUMBENS LEAF OIL [Concomitant]
     Active Substance: METHYL SALICYLATE
  12. CAMPHOR [Concomitant]
     Active Substance: CAMPHOR
  13. ALOE VERA LEAF [Concomitant]
     Active Substance: ALOE VERA LEAF
  14. HERBALS\LAVANDULA ANGUSTIFOLIA WHOLE [Concomitant]
     Active Substance: HERBALS\LAVANDULA ANGUSTIFOLIA WHOLE
  15. VITAMIN A [Concomitant]
     Active Substance: VITAMIN A
  16. ALMOND OIL [Concomitant]
     Active Substance: ALMOND OIL

REACTIONS (8)
  - Rheumatoid arthritis [Unknown]
  - Gastrointestinal surgery [Unknown]
  - Injection site mass [Unknown]
  - Lack of injection site rotation [Unknown]
  - Pain in extremity [Unknown]
  - Condition aggravated [Unknown]
  - Feeling abnormal [Unknown]
  - Pain [Not Recovered/Not Resolved]

NARRATIVE: CASE EVENT DATE: 20250101
